FAERS Safety Report 18182134 (Version 1)
Quarter: 2020Q3

REPORT INFORMATION
  Report Type: Spontaneous
  Country: US (occurrence: US)
  Receive Date: 20200821
  Receipt Date: 20200821
  Transmission Date: 20201103
  Serious: No
  Sender: FDA-Public Use
  Company Number: US-PFIZER INC-2020324319

PATIENT
  Age: 52 Year
  Sex: Female
  Weight: 69.89 kg

DRUGS (13)
  1. LIDODERM [Concomitant]
     Active Substance: LIDOCAINE
     Dosage: UNK (5 % ADHESIVE PATCH)
  2. DICLOFENAC SODIUM. [Concomitant]
     Active Substance: DICLOFENAC SODIUM
     Dosage: UNK (1 % GEL (GRAM))
  3. NAPROXEN. [Concomitant]
     Active Substance: NAPROXEN
     Dosage: UNK (500MG)
  4. MAGNESIUM [Concomitant]
     Active Substance: MAGNESIUM
     Dosage: UNK (250MG)
  5. VITAMIN D3 [Concomitant]
     Active Substance: CHOLECALCIFEROL
     Dosage: UNK (10MCG)
  6. XELJANZ XR [Suspect]
     Active Substance: TOFACITINIB CITRATE
     Indication: PSORIASIS
     Dosage: 11 MG, DAILY
     Route: 048
     Dates: start: 201911
  7. VITAMIN K [PHYTOMENADIONE] [Concomitant]
     Dosage: UNK (100MCG)
  8. TRYPTOPHAN [PYRIDOXINE HYDROCHLORIDE;TRYPTOPHAN, L?] [Concomitant]
     Active Substance: PYRIDOXINE\TRYPTOPHAN
     Dosage: UNK (100MG)
  9. MULTIVITAMIN [ASCORBIC ACID;CALCIUM PANTOTHENATE;CHROMIUM;COLECALCIFER [Concomitant]
     Dosage: UNK
  10. BIOTIN [Concomitant]
     Active Substance: BIOTIN
     Dosage: UNK (10MG)
  11. FLUOXETINE HCL [Concomitant]
     Active Substance: FLUOXETINE HYDROCHLORIDE
     Dosage: UNK (10MG)
  12. GABAPENTIN. [Concomitant]
     Active Substance: GABAPENTIN
     Dosage: UNK (300MG)
  13. DOXEPIN HCL [Concomitant]
     Active Substance: DOXEPIN HYDROCHLORIDE
     Dosage: UNK(10MG)

REACTIONS (1)
  - Insomnia [Not Recovered/Not Resolved]
